FAERS Safety Report 12857997 (Version 1)
Quarter: 2016Q4

REPORT INFORMATION
  Report Type: Spontaneous
  Country: US (occurrence: US)
  Receive Date: 20161018
  Receipt Date: 20161018
  Transmission Date: 20170207
  Serious: No
  Sender: FDA-Public Use
  Company Number: US-SA-2016SA170142

PATIENT
  Age: 42 Year
  Sex: Female

DRUGS (1)
  1. LEMTRADA [Suspect]
     Active Substance: ALEMTUZUMAB
     Indication: RELAPSING-REMITTING MULTIPLE SCLEROSIS
     Route: 041
     Dates: start: 20160912

REACTIONS (9)
  - Diarrhoea [Unknown]
  - Body temperature increased [Unknown]
  - Back pain [Recovered/Resolved]
  - Pruritus [Unknown]
  - Headache [Unknown]
  - Nausea [Recovered/Resolved]
  - Paraesthesia [Unknown]
  - Oropharyngeal pain [Recovered/Resolved]
  - Product preparation error [Unknown]

NARRATIVE: CASE EVENT DATE: 2016
